FAERS Safety Report 16672302 (Version 1)
Quarter: 2019Q3

REPORT INFORMATION
  Report Type: Spontaneous
  Country: PK (occurrence: PK)
  Receive Date: 20190806
  Receipt Date: 20190806
  Transmission Date: 20191004
  Serious: Yes (Other)
  Sender: FDA-Public Use
  Company Number: PK-LUPIN PHARMACEUTICALS INC.-2019-04896

PATIENT
  Age: 22 Year
  Sex: Female
  Weight: 65 kg

DRUGS (1)
  1. METFORMIN [Suspect]
     Active Substance: METFORMIN HYDROCHLORIDE
     Indication: POLYCYSTIC OVARIES
     Dosage: 500 MILLIGRAM, BID
     Route: 065

REACTIONS (15)
  - Pharyngitis [Recovering/Resolving]
  - Mood altered [Recovering/Resolving]
  - Vaginal haemorrhage [Unknown]
  - Rheumatic fever [Recovering/Resolving]
  - Tonsillitis [Recovering/Resolving]
  - Neuralgia [Unknown]
  - Antral follicle count low [Unknown]
  - Hyperuricaemia [Recovering/Resolving]
  - Off label use [Unknown]
  - Cluster headache [Unknown]
  - Palpitations [Unknown]
  - Breast tenderness [Unknown]
  - Immune-mediated adverse reaction [Recovering/Resolving]
  - Migraine [Unknown]
  - Arthralgia [Recovering/Resolving]
